FAERS Safety Report 6829074-5 (Version None)
Quarter: 2010Q3

REPORT INFORMATION
  Report Type: 
  Country: None (occurrence: None)
  Receive Date: 20100709
  Receipt Date: 20070226
  Transmission Date: 20110219
  Serious: No
  Sender: FDA-Public Use
  Company Number: US-PFIZER INC-2007003276

PATIENT
  Sex: Female
  Weight: 78.93 kg

DRUGS (9)
  1. CHANTIX [Suspect]
     Indication: SMOKING CESSATION THERAPY
     Dates: start: 20061201
  2. CYMBALTA [Concomitant]
  3. DILTIAZEM [Concomitant]
  4. BENICAR [Concomitant]
  5. TRAZODONE [Concomitant]
     Indication: SLEEP DISORDER
  6. ATIVAN [Concomitant]
  7. CALCIUM CARBONATE [Concomitant]
  8. VITAMIN D [Concomitant]
  9. IBANDRONATE SODIUM [Concomitant]

REACTIONS (3)
  - DYSPEPSIA [None]
  - HEADACHE [None]
  - NAUSEA [None]
